FAERS Safety Report 4717931-5 (Version None)
Quarter: 2005Q3

REPORT INFORMATION
  Report Type: 
  Country: None (occurrence: None)
  Receive Date: 20050718
  Receipt Date: 20050321
  Transmission Date: 20060218
  Serious: Yes (Other)
  Sender: FDA-Public Use
  Company Number: K200500416

PATIENT
  Age: 4 Year
  Sex: Female

DRUGS (5)
  1. LEVOXYL [Suspect]
     Indication: HYPOTHYROIDISM
     Dosage: 25 MCG, QD, ORAL;  75 MCG, QD, ORAL;  25 MCG, QD, ORAL
     Route: 048
     Dates: start: 20030521, end: 20050309
  2. LEVOXYL [Suspect]
     Indication: HYPOTHYROIDISM
     Dosage: 25 MCG, QD, ORAL;  75 MCG, QD, ORAL;  25 MCG, QD, ORAL
     Route: 048
     Dates: start: 20050310, end: 20050320
  3. LEVOXYL [Suspect]
     Indication: HYPOTHYROIDISM
     Dosage: 25 MCG, QD, ORAL;  75 MCG, QD, ORAL;  25 MCG, QD, ORAL
     Route: 048
     Dates: start: 20050321
  4. PREVACID [Concomitant]
  5. CLONIDINE [Concomitant]

REACTIONS (5)
  - COLD SWEAT [None]
  - CONVULSION [None]
  - INCORRECT DOSE ADMINISTERED [None]
  - OVERDOSE [None]
  - VOMITING [None]
